FAERS Safety Report 6114605-3 (Version None)
Quarter: 2009Q1

REPORT INFORMATION
  Report Type: 
  Country: None (occurrence: None)
  Receive Date: 20090313
  Receipt Date: 20090303
  Transmission Date: 20090719
  Serious: Yes (Hospitalization)
  Sender: FDA-Public Use
  Company Number: US-ABBOTT-09P-163-0560471-00

PATIENT
  Sex: Female
  Weight: 53.572 kg

DRUGS (6)
  1. HUMIRA [Suspect]
     Indication: CROHN'S DISEASE
     Dates: start: 20070101
  2. PENTASA [Concomitant]
     Indication: CROHN'S DISEASE
     Route: 048
  3. ENTOCORT EC [Concomitant]
     Indication: CROHN'S DISEASE
     Route: 048
  4. FLAGYL [Concomitant]
     Indication: CROHN'S DISEASE
     Route: 048
  5. IMURAN [Concomitant]
     Indication: CROHN'S DISEASE
     Route: 048
  6. LO/OVRAL [Concomitant]
     Indication: CONTRACEPTION

REACTIONS (5)
  - CROHN'S DISEASE [None]
  - FAECALOMA [None]
  - INTESTINAL STENOSIS [None]
  - LOCALISED INTRAABDOMINAL FLUID COLLECTION [None]
  - WHITE BLOOD CELL COUNT INCREASED [None]
